FAERS Safety Report 10853505 (Version 1)
Quarter: 2015Q1

REPORT INFORMATION
  Report Type: Spontaneous
  Country: US (occurrence: None)
  Receive Date: 20150218
  Receipt Date: 20150218
  Transmission Date: 20150721
  Serious: Yes (Life-Threatening, Hospitalization, Disabling)
  Sender: FDA-Public Use
  Company Number: None

PATIENT
  Age: 68 Year
  Sex: Female

DRUGS (1)
  1. NITROFURADANTOIN MONO-MCR 100MG EON LABS [Suspect]
     Active Substance: NITROFURANTOIN\NITROFURANTOIN MONOHYDRATE
     Indication: PROPHYLAXIS URINARY TRACT INFECTION
     Dosage: 1-2 PILLS PER DAY TWICE DAILY TAKEN BY MOUTH
     Route: 048

REACTIONS (5)
  - Medication residue present [None]
  - Hepatic steatosis [None]
  - Dyspnoea exertional [None]
  - Lower respiratory tract inflammation [None]
  - Oxygen saturation decreased [None]

NARRATIVE: CASE EVENT DATE: 20150129
